FAERS Safety Report 9229974 (Version 1)
Quarter: 2013Q2

REPORT INFORMATION
  Report Type: Spontaneous
  Country: US (occurrence: None)
  Receive Date: 20130412
  Receipt Date: 20130412
  Transmission Date: 20140414
  Serious: No
  Sender: FDA-Public Use
  Company Number: None

PATIENT
  Age: 70 Year
  Sex: Female

DRUGS (2)
  1. FORTEO [Suspect]
     Indication: BONE DISORDER
     Dosage: 20 MCG, DAILY, SQ
     Route: 058
     Dates: start: 20120807
  2. FORTEO [Suspect]
     Indication: CHONDROPATHY
     Dosage: 20 MCG, DAILY, SQ
     Route: 058
     Dates: start: 20120807

REACTIONS (1)
  - Weight increased [None]
